FAERS Safety Report 5503693-0 (Version None)
Quarter: 2007Q4

REPORT INFORMATION
  Report Type: 
  Country: None (occurrence: None)
  Receive Date: 20071101
  Receipt Date: 20071023
  Transmission Date: 20080405
  Serious: Yes (Hospitalization)
  Sender: FDA-Public Use
  Company Number: GB-JNJFOC-20071006262

PATIENT

DRUGS (6)
  1. REMICADE [Suspect]
     Route: 042
  2. REMICADE [Suspect]
     Indication: CROHN'S DISEASE
     Route: 042
  3. METRANIDAZOLE [Concomitant]
     Indication: CROHN'S DISEASE
  4. ADALIMUMAB [Concomitant]
     Dosage: FREQUENCY: EVERY OTHER WEEK
  5. LAMOTRIGINE [Concomitant]
     Indication: EPILEPSY
     Dosage: RECEIVED FOR YEARS
  6. VALPROATE SODIUM [Concomitant]
     Indication: EPILEPSY
     Dosage: RECEIVED FOR YEARS

REACTIONS (3)
  - ABDOMINAL PAIN [None]
  - DIARRHOEA [None]
  - WEIGHT DECREASED [None]
